FAERS Safety Report 6540687-0 (Version None)
Quarter: 2010Q1

REPORT INFORMATION
  Report Type: 
  Country: None (occurrence: None)
  Receive Date: 20100118
  Receipt Date: 20100104
  Transmission Date: 20100710
  Serious: Yes (Death, Hospitalization, Other)
  Sender: FDA-Public Use
  Company Number: BR-BAYER-200925829LA

PATIENT
  Age: 74 Year
  Sex: Female
  Weight: 75 kg

DRUGS (5)
  1. ADALAT [Suspect]
     Indication: HYPERTENSION
     Dosage: TOTAL DAILY DOSE: 60 MG  UNIT DOSE: 30 MG
     Route: 048
     Dates: start: 20040101, end: 20090907
  2. AAS [Concomitant]
     Indication: ANTICOAGULANT THERAPY
     Dosage: 1 TAB/DAY
     Route: 048
     Dates: start: 19970101, end: 20090907
  3. SIMVASTATIN [Concomitant]
     Indication: BLOOD CHOLESTEROL INCREASED
     Dosage: 1 TAB/DAY
     Route: 048
     Dates: start: 20040101, end: 20090907
  4. CAPTOPRIL [Concomitant]
     Indication: BLOOD PRESSURE MANAGEMENT
     Dates: start: 20090901
  5. UNKNOWN DRUG [Concomitant]
     Indication: CARDIAC DISORDER

REACTIONS (3)
  - CEREBROVASCULAR ACCIDENT [None]
  - COMA [None]
  - RESPIRATORY FAILURE [None]
